FAERS Safety Report 19816837 (Version 2)
Quarter: 2021Q4

REPORT INFORMATION
  Report Type: Other
  Country: US (occurrence: US)
  Receive Date: 20210909
  Receipt Date: 20211029
  Transmission Date: 20220304
  Serious: Yes (Other)
  Sender: FDA-Public Use
  Company Number: US-COVIS PHARMA GMBH-2021COV23844

PATIENT
  Age: 33 Year
  Sex: Female

DRUGS (1)
  1. MAKENA [Suspect]
     Active Substance: HYDROXYPROGESTERONE CAPROATE
     Indication: Product used for unknown indication
     Dosage: 275MG/1.1ML
     Route: 058
     Dates: start: 20210727

REACTIONS (4)
  - Loss of consciousness [Not Recovered/Not Resolved]
  - Anxiety [Unknown]
  - Hypotension [Not Recovered/Not Resolved]
  - Blood glucose decreased [Not Recovered/Not Resolved]

NARRATIVE: CASE EVENT DATE: 20210801
